FAERS Safety Report 6984185-9 (Version None)
Quarter: 2010Q3

REPORT INFORMATION
  Report Type: 
  Country: None (occurrence: None)
  Receive Date: 20100915
  Receipt Date: 20100902
  Transmission Date: 20110219
  Serious: Yes (Hospitalization)
  Sender: FDA-Public Use
  Company Number: US-BIOGENIDEC-2010BI022225

PATIENT
  Age: 43 Year
  Sex: Female
  Weight: 39 kg

DRUGS (5)
  1. TYSABRI [Suspect]
     Indication: MULTIPLE SCLEROSIS
     Route: 042
     Dates: start: 20080626, end: 20100722
  2. TEGRETOL [Concomitant]
     Indication: NEURALGIA
  3. BACLOFEN [Concomitant]
     Indication: MUSCLE SPASMS
  4. CYMBALTA [Concomitant]
     Indication: NEURALGIA
  5. MORPHINE [Concomitant]
     Indication: NEURALGIA

REACTIONS (12)
  - DECUBITUS ULCER [None]
  - DRUG INEFFECTIVE [None]
  - DYSPHAGIA [None]
  - GENERAL PHYSICAL HEALTH DETERIORATION [None]
  - IRON DEFICIENCY ANAEMIA [None]
  - KLEBSIELLA BACTERAEMIA [None]
  - KLEBSIELLA INFECTION [None]
  - MALNUTRITION [None]
  - MOBILITY DECREASED [None]
  - ORAL CANDIDIASIS [None]
  - THROMBOCYTOPENIA [None]
  - URINARY TRACT INFECTION BACTERIAL [None]
